FAERS Safety Report 11525144 (Version 1)
Quarter: 2015Q3

REPORT INFORMATION
  Report Type: Spontaneous
  Country: FR (occurrence: FR)
  Receive Date: 20150918
  Receipt Date: 20150918
  Transmission Date: 20151125
  Serious: Yes (Hospitalization, Other)
  Sender: FDA-Public Use
  Company Number: FR-CONCORDIA PHARMACEUTICALS INC.-CO-ZN-FR-2015-039

PATIENT
  Age: 74 Year
  Sex: Male

DRUGS (9)
  1. METOCLOPRAMIDE. [Suspect]
     Active Substance: METOCLOPRAMIDE
     Indication: PREMEDICATION
     Dates: start: 20150806, end: 20150806
  2. SIMVASTATINE [Concomitant]
     Active Substance: SIMVASTATIN
  3. AMAREL [Concomitant]
     Active Substance: GLIMEPIRIDE
  4. RANITIDINE HYDROCHLORIDE. [Suspect]
     Active Substance: RANITIDINE HYDROCHLORIDE
     Indication: PREMEDICATION
     Dates: start: 20150806, end: 20150806
  5. PACLITAXEL. [Concomitant]
     Active Substance: PACLITAXEL
     Dates: start: 20150402
  6. KARDEGIC [Concomitant]
     Active Substance: ASPIRIN LYSINE
  7. AMLOR [Concomitant]
     Active Substance: AMLODIPINE BESYLATE
  8. BISOPROLOL [Concomitant]
     Active Substance: BISOPROLOL
  9. SERETIDE [Concomitant]
     Active Substance: FLUTICASONE FUROATE\SALMETEROL XINAFOATE

REACTIONS (1)
  - Anaphylactic shock [Recovered/Resolved]

NARRATIVE: CASE EVENT DATE: 20150806
